FAERS Safety Report 6639854-7 (Version None)
Quarter: 2010Q1

REPORT INFORMATION
  Report Type: 
  Country: None (occurrence: None)
  Receive Date: 20100318
  Receipt Date: 20100315
  Transmission Date: 20100710
  Serious: Yes (Other)
  Sender: FDA-Public Use
  Company Number: US-SANOFI-AVENTIS-A03200801194

PATIENT
  Age: 28 Year
  Sex: Male

DRUGS (3)
  1. AMBIEN [Suspect]
     Indication: INSOMNIA
     Dosage: UNIT DOSE: 10 MG
     Route: 048
     Dates: start: 20030101, end: 20060905
  2. AMBIEN [Suspect]
     Indication: SLEEP DISORDER
     Dosage: UNIT DOSE: 10 MG
     Route: 048
     Dates: start: 20030101, end: 20060905
  3. ZYRTEC [Concomitant]
     Route: 065

REACTIONS (6)
  - AMNESIA [None]
  - FACE INJURY [None]
  - FALL [None]
  - IMPAIRED DRIVING ABILITY [None]
  - ROAD TRAFFIC ACCIDENT [None]
  - SOMNAMBULISM [None]
